FAERS Safety Report 5308764-X (Version None)
Quarter: 2007Q2

REPORT INFORMATION
  Report Type: 
  Country: None (occurrence: None)
  Receive Date: 20070426
  Receipt Date: 20070417
  Transmission Date: 20071010
  Serious: Yes (Other)
  Sender: FDA-Public Use
  Company Number: PHBS2007US07039

PATIENT
  Age: 37 Year
  Sex: Female

DRUGS (14)
  1. SIMVASTATIN [Concomitant]
  2. DOXAZOSIN MESYLATE [Concomitant]
  3. PHENOBARBITAL TAB [Concomitant]
  4. ALENDRONATE SODIUM [Concomitant]
     Dosage: 5 MG, Q48H
  5. OS-CAL [Concomitant]
     Dosage: 1000 MG, BID
  6. GLIPIZIDE [Concomitant]
  7. NIACIN [Concomitant]
  8. FUROSEMIDE [Concomitant]
     Dosage: 80 MG, UNK
  9. METOLAZONE [Concomitant]
     Dosage: 5 MG, UNK
  10. PREDNISONE TAB [Concomitant]
     Dosage: 7.5 MG, UNK
  11. VITAMIN CAP [Concomitant]
  12. ERGOCALCIFEROL [Concomitant]
     Dosage: 400 IU/DAY
  13. ERGOCALCIFEROL [Concomitant]
     Dosage: 800 IU, UNK
  14. PAMIDRONATE DISODIUM [Suspect]
     Dosage: 30 MG, ONCE/SINGLE
     Route: 042

REACTIONS (7)
  - ASTHENIA [None]
  - BLOOD MAGNESIUM DECREASED [None]
  - BLOOD PARATHYROID HORMONE INCREASED [None]
  - HYPOCALCAEMIA [None]
  - MUSCLE SPASMS [None]
  - MUSCLE TWITCHING [None]
  - TETANY [None]
